FAERS Safety Report 22817515 (Version 2)
Quarter: 2025Q2

REPORT INFORMATION
  Report Type: Report from Study
  Country: GB (occurrence: ES)
  Receive Date: 20230813
  Receipt Date: 20250503
  Transmission Date: 20250716
  Serious: Yes (Other)
  Sender: AUROBINDO
  Company Number: ES-009507513-2307GBR009265

PATIENT
  Age: 44 Year
  Sex: Male

DRUGS (3)
  1. ERTAPENEM [Suspect]
     Active Substance: ERTAPENEM
     Indication: Campylobacter infection
     Route: 051
     Dates: start: 2016, end: 2016
  2. TIGECYCLINE [Suspect]
     Active Substance: TIGECYCLINE
     Indication: Campylobacter infection
     Route: 051
     Dates: start: 2016
  3. CHLORAMPHENICOL [Suspect]
     Active Substance: CHLORAMPHENICOL
     Indication: Campylobacter infection
     Route: 051
     Dates: start: 2016

REACTIONS (2)
  - Pathogen resistance [Unknown]
  - Drug ineffective [Unknown]

NARRATIVE: CASE EVENT DATE: 20160101
